FAERS Safety Report 6231430-3 (Version None)
Quarter: 2009Q2

REPORT INFORMATION
  Report Type: 
  Country: None (occurrence: None)
  Receive Date: 20090616
  Receipt Date: 20090604
  Transmission Date: 20091009
  Serious: Yes (Other)
  Sender: FDA-Public Use
  Company Number: CA-GILEAD-2009-0022452

PATIENT
  Sex: Male
  Weight: 77.6 kg

DRUGS (5)
  1. TRUVADA [Suspect]
     Indication: HIV INFECTION
     Route: 048
     Dates: start: 20081009
  2. ATAZANAVIR SULFATE [Concomitant]
     Indication: HIV INFECTION
     Dates: start: 20081009
  3. RITONAVIR [Concomitant]
     Indication: HIV INFECTION
     Dates: start: 20081009
  4. METROGEL [Concomitant]
     Indication: ROSACEA
     Dates: start: 20081009
  5. TYLENOL (CAPLET) [Concomitant]
     Indication: BACK PAIN
     Dates: start: 20090415

REACTIONS (1)
  - FANCONI SYNDROME ACQUIRED [None]
